FAERS Safety Report 8183557-7 (Version None)
Quarter: 2012Q1

REPORT INFORMATION
  Report Type: 
  Country: None (occurrence: None)
  Receive Date: 20120130
  Receipt Date: 20110913
  Transmission Date: 20120608
  Serious: Yes (Other)
  Sender: FDA-Public Use
  Company Number: 041166

PATIENT
  Sex: Female
  Weight: 42.6 kg

DRUGS (2)
  1. KEPPRA [Suspect]
     Indication: EPILEPSY
     Dosage: (1600 MG, 100 MG IN AM AND 1500 MG IN PM FROM MANY YEARS ORAL)
     Route: 048
  2. LAMICTAL [Concomitant]

REACTIONS (2)
  - CONVULSION [None]
  - DRUG DOSE OMISSION [None]
